FAERS Safety Report 5007097-9 (Version None)
Quarter: 2006Q2

REPORT INFORMATION
  Report Type: 
  Country: None (occurrence: None)
  Receive Date: 20060517
  Receipt Date: 20060510
  Transmission Date: 20061013
  Serious: Yes (Other)
  Sender: FDA-Public Use
  Company Number: 2006062391

PATIENT
  Age: 3 Year
  Sex: Female

DRUGS (1)
  1. ZYRTEC [Suspect]
     Indication: MULTIPLE ALLERGIES
     Dosage: 2.5 MG (2.5 MG, 1 IN 1 D), ORAL
     Route: 048
     Dates: start: 20060509

REACTIONS (5)
  - CRYING [None]
  - FATIGUE [None]
  - IRRITABILITY [None]
  - ORAL INTAKE REDUCED [None]
  - SPEECH DISORDER [None]
